FAERS Safety Report 4804241-0 (Version None)
Quarter: 2005Q4

REPORT INFORMATION
  Report Type: 
  Country: None (occurrence: None)
  Receive Date: 20051020
  Receipt Date: 20051007
  Transmission Date: 20060501
  Serious: Yes (Hospitalization, Other)
  Sender: FDA-Public Use
  Company Number: GB-JNJFOC-20050802274

PATIENT
  Age: 75 Year

DRUGS (20)
  1. IBUPROFEN [Suspect]
     Indication: OSTEOPOROSIS
     Route: 048
  2. IBUPROFEN [Suspect]
     Indication: PROPHYLAXIS
     Route: 048
  3. ALENDRONATE [Suspect]
     Indication: OSTEOPOROSIS
     Route: 048
  4. ALENDRONATE [Suspect]
     Indication: PROPHYLAXIS
     Route: 048
  5. PREDNISOLONE [Suspect]
     Indication: DRUG USE FOR UNKNOWN INDICATION
  6. ENOXAPARIN SODIUM [Concomitant]
     Route: 065
  7. LACTULOSE [Concomitant]
     Route: 065
  8. SYMBICORT [Concomitant]
     Route: 065
  9. SYMBICORT [Concomitant]
     Route: 065
  10. ADCAL-D3 [Concomitant]
     Route: 065
  11. ADCAL-D3 [Concomitant]
     Route: 065
  12. QUININE [Concomitant]
  13. ORAMORPH SR [Concomitant]
     Route: 065
  14. SALBUTAMOL [Concomitant]
     Route: 055
  15. TIOTROPIUM BROMIDE [Concomitant]
     Route: 055
  16. MYSOLINE [Concomitant]
     Route: 048
  17. PHENOBARBITONE [Concomitant]
     Route: 048
  18. PARACETAMOL [Concomitant]
     Route: 065
  19. LANSOPRAZOLE [Concomitant]
  20. LANSOPRAZOLE [Concomitant]

REACTIONS (2)
  - OESOPHAGEAL ULCER [None]
  - REFLUX OESOPHAGITIS [None]
